FAERS Safety Report 4644989-4 (Version None)
Quarter: 2005Q2

REPORT INFORMATION
  Report Type: 
  Country: None (occurrence: None)
  Receive Date: 20050426
  Receipt Date: 20050415
  Transmission Date: 20051028
  Serious: Yes (Other)
  Sender: FDA-Public Use
  Company Number: US-JNJFOC-20050404121

PATIENT
  Sex: Male
  Weight: 73.48 kg

DRUGS (4)
  1. REMICADE [Suspect]
     Indication: CROHN'S DISEASE
     Route: 042
  2. STEROIDS [Concomitant]
     Indication: PAIN
  3. PENTASA [Concomitant]
  4. INDERAL [Concomitant]

REACTIONS (2)
  - INCREASED TENDENCY TO BRUISE [None]
  - MUSCULOSKELETAL STIFFNESS [None]
